FAERS Safety Report 21950592 (Version 1)
Quarter: 2023Q1

REPORT INFORMATION
  Report Type: Spontaneous
  Country: CA (occurrence: CA)
  Receive Date: 20230203
  Receipt Date: 20230203
  Transmission Date: 20230418
  Serious: Yes (Life-Threatening, Hospitalization, Other)
  Sender: FDA-Public Use
  Company Number: CA-002147023-NVSC2023CA023288

PATIENT
  Age: 11 Year
  Sex: Female

DRUGS (5)
  1. ERELZI [Interacting]
     Active Substance: ETANERCEPT-SZZS
     Indication: Dermatitis infected
     Dosage: 0.6 MG/KG
     Route: 058
  2. ERELZI [Interacting]
     Active Substance: ETANERCEPT-SZZS
     Dosage: 0.8 MG/KG
     Route: 058
  3. HUMAN IMMUNOGLOBULIN G [Interacting]
     Active Substance: HUMAN IMMUNOGLOBULIN G
     Indication: Multisystem inflammatory syndrome
     Dosage: UNK (FREQUENCY TOTAL)
     Route: 042
  4. HUMAN IMMUNOGLOBULIN G [Interacting]
     Active Substance: HUMAN IMMUNOGLOBULIN G
     Indication: Mucosal erosion
     Dosage: UNK
     Route: 065
  5. METHYLPREDNISOLONE [Interacting]
     Active Substance: METHYLPREDNISOLONE
     Indication: Dermatitis infected
     Dosage: 30 MG/KG, FREQUENCY (TOTAL)
     Route: 042

REACTIONS (3)
  - Drug interaction [Recovered/Resolved]
  - Off label use [Recovered/Resolved]
  - Drug ineffective for unapproved indication [Recovered/Resolved]
